FAERS Safety Report 5823679-6 (Version None)
Quarter: 2008Q3

REPORT INFORMATION
  Report Type: 
  Country: None (occurrence: None)
  Receive Date: 20080725
  Receipt Date: 20080715
  Transmission Date: 20090109
  Serious: Yes (Other)
  Sender: FDA-Public Use
  Company Number: DE-PFIZER INC-2008043596

PATIENT
  Sex: Female
  Weight: 56 kg

DRUGS (1)
  1. AROMASIN [Suspect]
     Indication: BREAST CANCER
     Route: 048
     Dates: start: 20070101, end: 20080501

REACTIONS (2)
  - PARAPSORIASIS [None]
  - PRURITUS [None]
